FAERS Safety Report 4396255-2 (Version None)
Quarter: 2004Q3

REPORT INFORMATION
  Report Type: 
  Country: None (occurrence: None)
  Receive Date: 20040713
  Receipt Date: 20040526
  Transmission Date: 20050211
  Serious: Yes (Other)
  Sender: FDA-Public Use
  Company Number: PHEH2004US05819

PATIENT
  Age: 78 Year
  Sex: Female

DRUGS (4)
  1. MIACALCIN [Suspect]
     Indication: OSTEOPOROSIS
     Dosage: 1 SPRAY QD
     Route: 045
     Dates: start: 20030501, end: 20040101
  2. LOVASTATIN [Concomitant]
  3. PENTOXIFYLLINE [Concomitant]
  4. VITAMINS NOS [Concomitant]

REACTIONS (11)
  - ANGIOGRAM ABNORMAL [None]
  - BLOOD CHOLESTEROL INCREASED [None]
  - BLOOD PRESSURE INCREASED [None]
  - BLOOD PRESSURE SYSTOLIC INCREASED [None]
  - CARDIAC DISCOMFORT [None]
  - CORONARY ARTERY OCCLUSION [None]
  - DIZZINESS [None]
  - ECG SIGNS OF MYOCARDIAL ISCHAEMIA [None]
  - MITRAL VALVE INCOMPETENCE [None]
  - MYOCARDIAL ISCHAEMIA [None]
  - PALPITATIONS [None]
